FAERS Safety Report 10892032 (Version 1)
Quarter: 2015Q1

REPORT INFORMATION
  Report Type: Spontaneous
  Country: TR (occurrence: TR)
  Receive Date: 20150306
  Receipt Date: 20150306
  Transmission Date: 20150721
  Serious: Yes (Hospitalization, Other)
  Sender: FDA-Public Use
  Company Number: TR-BAYER-2015-029061

PATIENT
  Age: 25 Year
  Sex: Female

DRUGS (8)
  1. CLOFAZIMINE [Suspect]
     Active Substance: CLOFAZIMINE
     Indication: TUBERCULOSIS
     Dosage: DAILY DOSE 200 MG
     Dates: start: 2011, end: 201309
  2. CYCLOSERINE. [Suspect]
     Active Substance: CYCLOSERINE
     Indication: TUBERCULOSIS
     Dosage: DAILY DOSE 500 MG
     Dates: start: 2011, end: 201309
  3. CLARITHROMYCIN. [Suspect]
     Active Substance: CLARITHROMYCIN
     Indication: TUBERCULOSIS
     Dosage: 1000 MG, UNK
     Dates: start: 2011, end: 201309
  4. PARA-AMINOSALICYLIC ACID [Suspect]
     Active Substance: AMINOSALICYLIC ACID
     Indication: TUBERCULOSIS
     Dosage: DAILY DOSE 8 G
     Dates: start: 2011, end: 201309
  5. CAPREOMYCIN [Suspect]
     Active Substance: CAPREOMYCIN
     Indication: TUBERCULOSIS
     Dosage: DAILY DOSE 750 MG
     Dates: start: 2011, end: 201309
  6. MOXIFLOXACIN ORAL [Suspect]
     Active Substance: MOXIFLOXACIN
     Indication: TUBERCULOSIS
     Dosage: DAILY DOSE 400 MG
     Dates: start: 2011, end: 201309
  7. ETHIONAMIDE [Suspect]
     Active Substance: ETHIONAMIDE
     Indication: TUBERCULOSIS
     Dosage: DAILY DOSE 750 MG
     Dates: start: 2011, end: 201309
  8. AMOXICILLIN W/CLAVULANIC ACID [Suspect]
     Active Substance: AMOXICILLIN\CLAVULANIC ACID
     Indication: TUBERCULOSIS
     Dosage: 4000-250 MG/DAY
     Dates: start: 2011, end: 201309

REACTIONS (6)
  - Hypothyroidism [Recovered/Resolved]
  - Depression [Recovered/Resolved]
  - Pathogen resistance [None]
  - Maternal exposure during pregnancy [None]
  - Product use issue [None]
  - Suicidal ideation [Recovered/Resolved]

NARRATIVE: CASE EVENT DATE: 2011
